FAERS Safety Report 7804381-8 (Version None)
Quarter: 2011Q4

REPORT INFORMATION
  Report Type: 
  Country: None (occurrence: None)
  Receive Date: 20111010
  Receipt Date: 20110927
  Transmission Date: 20120403
  Serious: Yes (Hospitalization, Other)
  Sender: FDA-Public Use
  Company Number: US-ELI_LILLY_AND_COMPANY-US201109008639

PATIENT
  Sex: Female

DRUGS (1)
  1. EVISTA [Suspect]
     Dosage: 60 MG, QD

REACTIONS (3)
  - HOSPITALISATION [None]
  - GASTROINTESTINAL TUBE INSERTION [None]
  - INCORRECT ROUTE OF DRUG ADMINISTRATION [None]
